FAERS Safety Report 7608113-8 (Version None)
Quarter: 2011Q3

REPORT INFORMATION
  Report Type: 
  Country: None (occurrence: None)
  Receive Date: 20110706
  Receipt Date: 20110624
  Transmission Date: 20111222
  Serious: Yes (Other)
  Sender: FDA-Public Use
  Company Number: 2011SP029794

PATIENT
  Sex: Female

DRUGS (2)
  1. RIBAVIRIN [Suspect]
     Indication: HEPATITIS C
     Dates: start: 20110408
  2. PEG-INTRON [Suspect]
     Indication: HEPATITIS C
     Dates: start: 20110408

REACTIONS (3)
  - LACERATION [None]
  - TONGUE INJURY [None]
  - TONGUE DISCOLOURATION [None]
